FAERS Safety Report 21302132 (Version 2)
Quarter: 2022Q3

REPORT INFORMATION
  Report Type: Report from Study
  Country: US (occurrence: US)
  Receive Date: 20220907
  Receipt Date: 20220913
  Transmission Date: 20221027
  Serious: Yes (Hospitalization)
  Sender: FDA-Public Use
  Company Number: US-PFIZER INC-PV202200054222

PATIENT
  Age: 48 Year
  Sex: Female
  Weight: 109 kg

DRUGS (2)
  1. PF-07284892 [Suspect]
     Active Substance: PF-07284892
     Indication: Colorectal cancer
     Dosage: 40 MG, 2X/WEEK (BIW)
     Route: 048
     Dates: start: 20220630
  2. BINIMETINIB [Suspect]
     Active Substance: BINIMETINIB
     Indication: Colorectal cancer
     Dosage: 45 MG, 2X/DAY (BID)
     Route: 048
     Dates: start: 20220815

REACTIONS (2)
  - Dyspnoea [Recovered/Resolved]
  - Pyrexia [Recovered/Resolved]

NARRATIVE: CASE EVENT DATE: 20220829
